FAERS Safety Report 5688347-2 (Version None)
Quarter: 2008Q1

REPORT INFORMATION
  Report Type: 
  Country: None (occurrence: None)
  Receive Date: 20080328
  Receipt Date: 20080328
  Transmission Date: 20080703
  Serious: Yes (Hospitalization)
  Sender: FDA-Public Use
  Company Number: None

PATIENT
  Age: 27 Year
  Sex: Male

DRUGS (1)
  1. RISPERIDONE [Suspect]
     Indication: POST-TRAUMATIC STRESS DISORDER
     Dosage: 1MG HS PO
     Route: 048
     Dates: start: 20080201, end: 20080310

REACTIONS (2)
  - HEPATIC ENZYME INCREASED [None]
  - SYNCOPE [None]
